FAERS Safety Report 16145092 (Version 1)
Quarter: 2019Q2

REPORT INFORMATION
  Report Type: Spontaneous
  Country: US (occurrence: US)
  Receive Date: 20190402
  Receipt Date: 20190402
  Transmission Date: 20190711
  Serious: Yes (Disabling, Other)
  Sender: FDA-Public Use
  Company Number: US-009507513-1904USA000028

PATIENT
  Sex: Male

DRUGS (3)
  1. CARBOPLATIN. [Suspect]
     Active Substance: CARBOPLATIN
  2. KEYTRUDA [Suspect]
     Active Substance: PEMBROLIZUMAB
  3. TAXOL [Suspect]
     Active Substance: PACLITAXEL

REACTIONS (1)
  - Guillain-Barre syndrome [Not Recovered/Not Resolved]
